FAERS Safety Report 10550519 (Version 1)
Quarter: 2014Q4

REPORT INFORMATION
  Report Type: Spontaneous
  Country: US (occurrence: US)
  Receive Date: 20141029
  Receipt Date: 20141029
  Transmission Date: 20150529
  Serious: No
  Sender: FDA-Public Use
  Company Number: US-TEVA-506854USA

PATIENT
  Age: 66 Year
  Sex: Female

DRUGS (1)
  1. PROVIGIL [Suspect]
     Active Substance: MODAFINIL
     Indication: NARCOLEPSY
     Route: 048
     Dates: start: 20140829

REACTIONS (5)
  - Rash [Unknown]
  - Feeling abnormal [Unknown]
  - Drug effect decreased [Unknown]
  - Pruritus [Unknown]
  - Erythema [Unknown]
